FAERS Safety Report 5511876-9 (Version None)
Quarter: 2007Q4

REPORT INFORMATION
  Report Type: 
  Country: None (occurrence: None)
  Receive Date: 20071109
  Receipt Date: 20071029
  Transmission Date: 20080405
  Serious: Yes (Hospitalization, Other)
  Sender: FDA-Public Use
  Company Number: US-PFIZER INC-2007091077

PATIENT
  Sex: Female
  Weight: 58.5 kg

DRUGS (8)
  1. SUTENT [Suspect]
     Indication: OVARIAN CANCER
     Dates: start: 20070801, end: 20070101
  2. DILAUDID [Concomitant]
  3. COMPAZINE [Concomitant]
  4. ATIVAN [Concomitant]
  5. AMBIEN [Concomitant]
  6. COZAAR [Concomitant]
  7. CLOTRIMAZOLE [Concomitant]
  8. MARINOL [Concomitant]

REACTIONS (2)
  - ADVERSE EVENT [None]
  - INTESTINAL FISTULA [None]
